FAERS Safety Report 14556441 (Version 1)
Quarter: 2018Q1

REPORT INFORMATION
  Report Type: Report from Study
  Country: US (occurrence: US)
  Receive Date: 20180221
  Receipt Date: 20180221
  Transmission Date: 20180509
  Serious: Yes (Other)
  Sender: FDA-Public Use
  Company Number: US-ROCHE-2061245

PATIENT
  Age: 44 Year
  Sex: Female
  Weight: 99.88 kg

DRUGS (3)
  1. GABAPENTIN. [Concomitant]
     Active Substance: GABAPENTIN
     Indication: ANALGESIC THERAPY
  2. OCREVUS [Suspect]
     Active Substance: OCRELIZUMAB
     Dosage: UNKNOWN
     Route: 042
     Dates: start: 20180122
  3. OCREVUS [Suspect]
     Active Substance: OCRELIZUMAB
     Indication: RELAPSING-REMITTING MULTIPLE SCLEROSIS
     Route: 042
     Dates: start: 20180116

REACTIONS (18)
  - Chest discomfort [Unknown]
  - Dyspnoea [Unknown]
  - Urticaria [Unknown]
  - Hypertension [Unknown]
  - Rash [Recovered/Resolved]
  - Cough [Recovered/Resolved]
  - Eye pain [Unknown]
  - Dyspnoea [Unknown]
  - Shock [Unknown]
  - Oropharyngeal pain [Unknown]
  - Chest discomfort [Recovered/Resolved]
  - Visual impairment [Unknown]
  - Bronchospasm [Recovered/Resolved]
  - Feeling hot [Unknown]
  - Pruritus [Unknown]
  - Cough [Unknown]
  - Flushing [Recovered/Resolved]
  - Photosensitivity reaction [Unknown]

NARRATIVE: CASE EVENT DATE: 20180116
